FAERS Safety Report 19185650 (Version 2)
Quarter: 2021Q2

REPORT INFORMATION
  Report Type: Report from Study
  Country: AU (occurrence: AU)
  Receive Date: 20210427
  Receipt Date: 20210511
  Transmission Date: 20210717
  Serious: Yes (Hospitalization)
  Sender: FDA-Public Use
  Company Number: AU-EISAI MEDICAL RESEARCH-EC-2021-090962

PATIENT
  Age: 81 Year
  Sex: Male
  Weight: 68 kg

DRUGS (18)
  1. ERIBULIN [Suspect]
     Active Substance: ERIBULIN
     Indication: SARCOMA
     Route: 042
     Dates: start: 20210315, end: 20210418
  2. ASPIRIN. [Concomitant]
     Active Substance: ASPIRIN
  3. ATORVASTATIN [Concomitant]
     Active Substance: ATORVASTATIN
  4. MIRTAZAPINE. [Concomitant]
     Active Substance: MIRTAZAPINE
  5. KINSON [Concomitant]
     Active Substance: CARBIDOPA\LEVODOPA
  6. OXYCODONE [Concomitant]
     Active Substance: OXYCODONE
  7. PANTOPRAZOLE [Concomitant]
     Active Substance: PANTOPRAZOLE
  8. LORAZEPAM. [Concomitant]
     Active Substance: LORAZEPAM
  9. LERCANIDIPINE [Concomitant]
     Active Substance: LERCANIDIPINE
  10. PRAMIPEXOLE. [Concomitant]
     Active Substance: PRAMIPEXOLE
  11. PARACETAMOL [Concomitant]
     Active Substance: ACETAMINOPHEN
  12. VITAMIN D [Concomitant]
     Active Substance: VITAMIN D NOS
  13. METHADONE [Concomitant]
     Active Substance: METHADONE HYDROCHLORIDE
  14. PREDNISOLONE. [Concomitant]
     Active Substance: PREDNISOLONE
  15. IRBESARTAN. [Concomitant]
     Active Substance: IRBESARTAN
  16. PROPANOLOL [Concomitant]
     Active Substance: PROPRANOLOL HYDROCHLORIDE
  17. FENTANYL. [Concomitant]
     Active Substance: FENTANYL
  18. PREGABALIN. [Concomitant]
     Active Substance: PREGABALIN

REACTIONS (2)
  - Pneumonia [Recovered/Resolved]
  - Oedema peripheral [Not Recovered/Not Resolved]

NARRATIVE: CASE EVENT DATE: 20210331
